FAERS Safety Report 21919839 (Version 1)
Quarter: 2023Q1

REPORT INFORMATION
  Report Type: Spontaneous
  Country: US (occurrence: US)
  Receive Date: 20230127
  Receipt Date: 20230127
  Transmission Date: 20230417
  Serious: Yes (Life-Threatening, Hospitalization)
  Sender: FDA-Public Use
  Company Number: US-MYLANLABS-2023M1008934

PATIENT
  Age: 70 Year
  Sex: Male

DRUGS (2)
  1. HEPARIN [Suspect]
     Active Substance: HEPARIN SODIUM
     Indication: Thrombosis in device
     Dosage: UNK, WITH CKRT
     Route: 065
  2. CITRIC ACID [Concomitant]
     Active Substance: CITRIC ACID MONOHYDRATE
     Indication: Thrombosis in device
     Dosage: UNK, WITH CKRT
     Route: 065

REACTIONS (1)
  - Drug ineffective [Unknown]
